FAERS Safety Report 17039806 (Version 3)
Quarter: 2020Q2

REPORT INFORMATION
  Report Type: Spontaneous
  Country: DE (occurrence: DE)
  Receive Date: 20191116
  Receipt Date: 20200410
  Transmission Date: 20200713
  Serious: Yes (Other)
  Sender: FDA-Public Use
  Company Number: DE-AUROBINDO-AUR-APL-2019-072847

PATIENT
  Age: 36 Year
  Sex: Female
  Weight: 59 kg

DRUGS (3)
  1. QUETIAPINE. [Suspect]
     Active Substance: QUETIAPINE
     Indication: SCHIZOAFFECTIVE DISORDER
     Dosage: 900 MG, QD (BIS 400)
     Route: 048
     Dates: start: 20170901, end: 20180620
  2. RISPERDAL [Concomitant]
     Active Substance: RISPERIDONE
     Indication: SCHIZOAFFECTIVE DISORDER
     Dosage: 4 MILLIGRAM, ONCE A DAY
     Route: 048
  3. OXYTOCIN. [Concomitant]
     Active Substance: OXYTOCIN
     Indication: LABOUR INDUCTION
     Dosage: 41.3. - 41.3. GESTATIONAL WEEK
     Route: 042

REACTIONS (2)
  - Exposure during pregnancy [Unknown]
  - Gestational diabetes [Recovered/Resolved]
